FAERS Safety Report 8992684 (Version 3)
Quarter: 2013Q4

REPORT INFORMATION
  Report Type: Spontaneous
  Country: ES (occurrence: US)
  Receive Date: 20130101
  Receipt Date: 20131017
  Transmission Date: 20140711
  Serious: Yes (Life-Threatening, Hospitalization, Other)
  Sender: FDA-Public Use
  Company Number: US-009507513-0903USA00788

PATIENT
  Age: 75 Year
  Sex: Female
  Weight: 83.2 kg

DRUGS (20)
  1. MEVACOR TABLET [Suspect]
     Indication: HYPERLIPIDAEMIA
     Dosage: 40 MG, HS
     Route: 048
  2. JANUVIA [Interacting]
     Indication: DIABETES MELLITUS
     Dosage: 100 MG, QD
     Route: 048
  3. DILTIAZEM HYDROCHLORIDE [Concomitant]
     Dosage: 240 MG, QD
     Route: 048
  4. GLIMEPIRIDE [Concomitant]
     Dosage: 1 MG, QD
  5. LEVOTHYROXINE SODIUM [Concomitant]
     Dosage: 88 MICROGRAM, QD
     Route: 048
  6. HYDROCHLOROTHIAZIDE [Concomitant]
     Dosage: 12.5 MG, QD
     Route: 048
  7. METOCLOPRAMIDE [Concomitant]
     Dosage: 10 MG, PRN
  8. FOSAMAX [Concomitant]
     Dosage: 70 MG, QW
     Route: 048
  9. NEXIUM [Concomitant]
     Dosage: 40 MG, QD
     Route: 048
  10. TIOTROPIUM BROMIDE [Concomitant]
     Dosage: 18 MICROGRAM, QD
  11. DODEX [Concomitant]
     Dosage: UNK UNK, QD
  12. HYDROMORPHONE [Concomitant]
     Dosage: 4 MG, UNK
  13. METHOCARBAMOL [Concomitant]
     Dosage: 750 MG, UNK
  14. DI-GESIC [Concomitant]
     Dosage: 650-100
  15. PYRIDOXINE [Concomitant]
  16. PROPOXYPHENE [Concomitant]
  17. ROSIGLITAZONE MALEATE [Concomitant]
  18. PIOGLITAZONE HYDROCHLORIDE [Concomitant]
  19. FOLIC ACID [Concomitant]
  20. PENICILLIN (UNSPECIFIED) [Concomitant]

REACTIONS (9)
  - Rhabdomyolysis [Recovered/Resolved]
  - Anxiety [Unknown]
  - Drug interaction [Unknown]
  - Back pain [Unknown]
  - Aspartate aminotransferase increased [Recovered/Resolved]
  - Alanine aminotransferase increased [Recovered/Resolved]
  - Weight decreased [Unknown]
  - Fall [Unknown]
  - Hypertension [Unknown]
